FAERS Safety Report 16507850 (Version 21)
Quarter: 2021Q2

REPORT INFORMATION
  Report Type: Spontaneous
  Country: BR (occurrence: BR)
  Receive Date: 20190701
  Receipt Date: 20210528
  Transmission Date: 20210716
  Serious: Yes (Other)
  Sender: FDA-Public Use
  Company Number: BR-GLAXOSMITHKLINE-BR2019GSK041108

PATIENT
  Age: 44 Year
  Sex: Female
  Weight: 64 kg

DRUGS (17)
  1. AZITHROMYCIN ANHYDROUS. [Suspect]
     Active Substance: AZITHROMYCIN ANHYDROUS
     Indication: ADVERSE DRUG REACTION
  2. AEROLIN [Suspect]
     Active Substance: ALBUTEROL
     Indication: COUGH
  3. PREDSIN [Suspect]
     Active Substance: CHLORAMPHENICOL\PREDNISOLONE
     Indication: ADVERSE DRUG REACTION
     Dosage: UNK
  4. OMEPRAZOLE. [Concomitant]
     Active Substance: OMEPRAZOLE
     Indication: GASTROOESOPHAGEAL REFLUX DISEASE
     Dosage: UNK
  5. AEROLIN [Suspect]
     Active Substance: ALBUTEROL
     Indication: DYSPNOEA
     Dosage: UNK
  6. SERETIDE [Suspect]
     Active Substance: FLUTICASONE PROPIONATE\SALMETEROL XINAFOATE
     Indication: DYSPNOEA
     Dosage: UNK
  7. SALBUTAMOL [Suspect]
     Active Substance: ALBUTEROL
     Indication: PRODUCT USED FOR UNKNOWN INDICATION
     Dosage: UNK
  8. AEROLIN [Suspect]
     Active Substance: ALBUTEROL
     Indication: ASTHMATIC CRISIS
  9. PREDNISONE. [Suspect]
     Active Substance: PREDNISONE
     Indication: FATIGUE
     Dosage: 5 MG, UNK
     Dates: start: 20190617
  10. NUCALA [Suspect]
     Active Substance: MEPOLIZUMAB
     Indication: ASTHMA
     Dosage: 100 MG, Z(MONTHLY)
     Route: 042
     Dates: start: 20190227, end: 20190806
  11. AZITHROMYCIN ANHYDROUS. [Suspect]
     Active Substance: AZITHROMYCIN ANHYDROUS
     Indication: PNEUMONIA
     Dosage: UNK
  12. PREDNISONE. [Suspect]
     Active Substance: PREDNISONE
     Indication: HEART RATE INCREASED
  13. PREDNISOLONE. [Suspect]
     Active Substance: PREDNISOLONE
     Dosage: 40 MG
     Route: 055
  14. PREDNISOLONE. [Suspect]
     Active Substance: PREDNISOLONE
     Dosage: 20 MG, BID
     Route: 055
  15. SERETIDE [Suspect]
     Active Substance: FLUTICASONE PROPIONATE\SALMETEROL XINAFOATE
     Indication: HEART RATE INCREASED
  16. PREDNISOLONE. [Suspect]
     Active Substance: PREDNISOLONE
     Indication: RHINITIS
     Dosage: 20 MG
     Route: 055
  17. PREDNISONE. [Suspect]
     Active Substance: PREDNISONE
     Indication: DYSPNOEA
     Dosage: 20 MG, BID

REACTIONS (48)
  - Gastrooesophageal reflux disease [Recovered/Resolved]
  - Procedural complication [Unknown]
  - Pain [Unknown]
  - Hyperhidrosis [Unknown]
  - Throat tightness [Unknown]
  - Leiomyoma [Unknown]
  - Abdominal pain [Not Recovered/Not Resolved]
  - Allergic respiratory disease [Recovered/Resolved]
  - Fatigue [Not Recovered/Not Resolved]
  - Dyspnoea [Unknown]
  - Polymenorrhoea [Unknown]
  - Lung abscess [Recovered/Resolved]
  - Nausea [Recovered/Resolved]
  - Cough [Not Recovered/Not Resolved]
  - Obstructive airways disorder [Unknown]
  - Nervousness [Unknown]
  - Suffocation feeling [Unknown]
  - Sneezing [Not Recovered/Not Resolved]
  - Asthmatic crisis [Unknown]
  - Vomiting [Recovered/Resolved]
  - Disease recurrence [Not Recovered/Not Resolved]
  - Insomnia [Unknown]
  - Secretion discharge [Not Recovered/Not Resolved]
  - Product dose omission issue [Unknown]
  - Pneumonia [Recovered/Resolved]
  - Pyrexia [Unknown]
  - Feeling abnormal [Unknown]
  - Anosmia [Unknown]
  - Loss of personal independence in daily activities [Unknown]
  - Drug ineffective [Unknown]
  - Immunosuppression [Not Recovered/Not Resolved]
  - Myalgia [Recovered/Resolved]
  - Rhinitis [Recovered/Resolved]
  - Dyspnoea [Not Recovered/Not Resolved]
  - Oxygen saturation abnormal [Recovered/Resolved]
  - Wheezing [Not Recovered/Not Resolved]
  - Headache [Not Recovered/Not Resolved]
  - Heart rate increased [Not Recovered/Not Resolved]
  - Malaise [Recovered/Resolved]
  - Ageusia [Unknown]
  - Pulmonary congestion [Recovered/Resolved]
  - Uterine injury [Unknown]
  - Tremor [Not Recovered/Not Resolved]
  - Myomectomy [Unknown]
  - Mite allergy [Unknown]
  - Self-medication [Unknown]
  - Condition aggravated [Unknown]
  - Rhinalgia [Not Recovered/Not Resolved]

NARRATIVE: CASE EVENT DATE: 20190228
